FAERS Safety Report 9322492 (Version 1)
Quarter: 2013Q2

REPORT INFORMATION
  Report Type: Spontaneous
  Country: US (occurrence: US)
  Receive Date: 20130531
  Receipt Date: 20130531
  Transmission Date: 20140414
  Serious: Yes (Other)
  Sender: FDA-Public Use
  Company Number: US-ABBOTT-13P-163-1092644-00

PATIENT
  Age: 45 Year
  Sex: Female
  Weight: 54.48 kg

DRUGS (1)
  1. SYNTHROID [Suspect]
     Indication: HYPOTHYROIDISM
     Dates: start: 201304

REACTIONS (5)
  - Migraine [Unknown]
  - Impaired work ability [Unknown]
  - Drug ineffective [Unknown]
  - Thyroid function test abnormal [Unknown]
  - Malabsorption [Unknown]
